FAERS Safety Report 21083884 (Version 1)
Quarter: 2022Q3

REPORT INFORMATION
  Report Type: Spontaneous
  Country: US (occurrence: None)
  Receive Date: 20220714
  Receipt Date: 20220714
  Transmission Date: 20221026
  Serious: Yes (Hospitalization)
  Sender: FDA-Public Use
  Company Number: None

PATIENT
  Age: 60 Year
  Sex: Male
  Weight: 106 kg

DRUGS (1)
  1. RIVAROXABAN [Suspect]
     Active Substance: RIVAROXABAN
     Dosage: FREQUENCY : AT BEDTIME;?
     Route: 048
     Dates: start: 20211029

REACTIONS (3)
  - Haematuria [None]
  - Anaemia [None]
  - Transitional cell carcinoma [None]

NARRATIVE: CASE EVENT DATE: 20220216
